FAERS Safety Report 5093752-1 (Version None)
Quarter: 2006Q3

REPORT INFORMATION
  Report Type: 
  Country: None (occurrence: None)
  Receive Date: 20060831
  Receipt Date: 20060819
  Transmission Date: 20061208
  Serious: Yes (Hospitalization, Other)
  Sender: FDA-Public Use
  Company Number: US-JNJFOC-20060804881

PATIENT
  Age: 48 Year
  Sex: Male

DRUGS (8)
  1. PREZISTA [Suspect]
     Route: 048
  2. PREZISTA [Suspect]
     Indication: HIV INFECTION
     Route: 048
  3. RITONAVIR [Concomitant]
     Indication: HIV INFECTION
     Route: 048
  4. VIREAD [Concomitant]
     Indication: HIV INFECTION
     Route: 065
  5. EPZICOM [Concomitant]
     Indication: HIV INFECTION
     Route: 065
  6. FUZEON [Concomitant]
     Route: 065
  7. FUZEON [Concomitant]
     Indication: HIV INFECTION
     Route: 065
  8. LASIX [Concomitant]
     Indication: ASCITES
     Route: 065

REACTIONS (3)
  - CARDIAC FAILURE CONGESTIVE [None]
  - CLOSTRIDIAL INFECTION [None]
  - RENAL FAILURE ACUTE [None]
